FAERS Safety Report 12126811 (Version 5)
Quarter: 2016Q4

REPORT INFORMATION
  Report Type: Spontaneous
  Country: PR (occurrence: PR)
  Receive Date: 20160229
  Receipt Date: 20161110
  Transmission Date: 20170206
  Serious: No
  Sender: FDA-Public Use
  Company Number: PR-PFIZER INC-2016102097

PATIENT
  Age: 51 Year
  Sex: Female
  Weight: 66.21 kg

DRUGS (5)
  1. IBRANCE [Suspect]
     Active Substance: PALBOCICLIB
     Dosage: 75 MG, DAILY
     Route: 048
     Dates: start: 20151007
  2. IBRANCE [Suspect]
     Active Substance: PALBOCICLIB
     Dosage: 75 MG, DAILY
     Route: 048
     Dates: start: 20151007
  3. LETROZOLE. [Concomitant]
     Active Substance: LETROZOLE
     Dosage: 2.5 MG, UNK
  4. IBRANCE [Suspect]
     Active Substance: PALBOCICLIB
     Dosage: 75 MG, 1X/DAY
     Route: 048
  5. IBRANCE [Suspect]
     Active Substance: PALBOCICLIB
     Indication: BREAST CANCER FEMALE
     Dosage: 75 MG, 1X/DAY
     Route: 048
     Dates: start: 20151007, end: 20160204

REACTIONS (8)
  - Hypoaesthesia [Unknown]
  - Nasal congestion [Unknown]
  - Asthma [Unknown]
  - Hypoglycaemia [Unknown]
  - Arthralgia [Unknown]
  - Dizziness [Unknown]
  - Rhinitis allergic [Unknown]
  - Nausea [Unknown]
